FAERS Safety Report 9637338 (Version 1)
Quarter: 2013Q4

REPORT INFORMATION
  Report Type: Report from Study
  Country: MX (occurrence: MX)
  Receive Date: 20131022
  Receipt Date: 20131022
  Transmission Date: 20140711
  Serious: Yes (Death)
  Sender: FDA-Public Use
  Company Number: PHHY2013MX118510

PATIENT
  Age: 79 Year
  Sex: Female

DRUGS (3)
  1. GALVUS [Suspect]
     Indication: DIABETES MELLITUS
     Dosage: 1 DF, (50MG VILDA), DAILY
     Route: 048
  2. DIOVAN [Suspect]
     Indication: HYPERTENSION
     Dosage: 320 MG, UNK
     Route: 048
  3. CO-DIOVAN [Suspect]

REACTIONS (1)
  - Death [Fatal]
